FAERS Safety Report 4801761-X (Version None)
Quarter: 2005Q4

REPORT INFORMATION
  Report Type: 
  Country: None (occurrence: None)
  Receive Date: 20051018
  Receipt Date: 20051005
  Transmission Date: 20060501
  Serious: Yes (Death)
  Sender: FDA-Public Use
  Company Number: DK-JNJFOC-20050906511

PATIENT
  Sex: Female
  Weight: 81 kg

DRUGS (16)
  1. RISPERDAL CONSTA [Suspect]
     Indication: SCHIZOPHRENIA
     Route: 030
  2. RISPERDAL [Suspect]
     Indication: DRUG USE FOR UNKNOWN INDICATION
     Route: 048
  3. ORAP [Concomitant]
     Route: 048
  4. SEROQUEL [Concomitant]
  5. DISIPAL [Concomitant]
  6. PANTOPRAZOLE SODIUM [Concomitant]
  7. NOVYNETTE [Concomitant]
  8. NOVYNETTE [Concomitant]
  9. CLONAZEPAM [Concomitant]
  10. GAVISCON [Concomitant]
  11. GAVISCON [Concomitant]
     Dosage: MIXT 15 ML P.N. MAX. X 3
  12. OXAZEPAM [Concomitant]
     Dosage: 15 MG P.N.MAX. X 4
  13. PRIMPERAM [Concomitant]
     Dosage: 20 MG P.N. MAX. 2
  14. PINEX [Concomitant]
     Dosage: 1 G P.N. MAX.X 3
  15. TRUXAL [Concomitant]
     Dosage: 50-100 MG P.N. MAX 250MG
  16. LACTULOSE [Concomitant]

REACTIONS (2)
  - CONVULSION [None]
  - SUDDEN DEATH [None]
